FAERS Safety Report 16372116 (Version 1)
Quarter: 2019Q2

REPORT INFORMATION
  Report Type: Spontaneous
  Country: CA (occurrence: CA)
  Receive Date: 20190530
  Receipt Date: 20190530
  Transmission Date: 20190711
  Serious: Yes (Disabling)
  Sender: FDA-Public Use
  Company Number: CA-PFIZER INC-2019227537

PATIENT
  Age: 37 Year
  Sex: Female
  Weight: 73 kg

DRUGS (1)
  1. LYRICA [Suspect]
     Active Substance: PREGABALIN
     Indication: NECK PAIN
     Dosage: 50 MG, 1X/DAY
     Route: 048

REACTIONS (18)
  - Headache [Unknown]
  - Dry eye [Unknown]
  - Anxiety [Unknown]
  - Disturbance in attention [Unknown]
  - Thinking abnormal [Unknown]
  - Confusional state [Unknown]
  - Decreased appetite [Unknown]
  - Incoherent [Unknown]
  - Suicidal ideation [Unknown]
  - Vomiting [Unknown]
  - Apathy [Unknown]
  - Hypersomnia [Unknown]
  - Balance disorder [Unknown]
  - Dizziness [Unknown]
  - Paraesthesia [Unknown]
  - Depression [Unknown]
  - Nausea [Unknown]
  - Pain [Unknown]
